FAERS Safety Report 5279573-5 (Version None)
Quarter: 2007Q1

REPORT INFORMATION
  Report Type: 
  Country: None (occurrence: None)
  Receive Date: 20070328
  Receipt Date: 20070316
  Transmission Date: 20070707
  Serious: Yes (Hospitalization)
  Sender: FDA-Public Use
  Company Number: FR-PFIZER INC-2007021602

PATIENT
  Age: 60 Year
  Sex: Female

DRUGS (2)
  1. SUTENT [Suspect]
     Indication: GASTROINTESTINAL STROMAL TUMOUR
  2. LEVOTHYROXINE SODIUM [Concomitant]

REACTIONS (1)
  - ENCEPHALOPATHY [None]
